FAERS Safety Report 4617919-9 (Version None)
Quarter: 2005Q1

REPORT INFORMATION
  Report Type: 
  Country: None (occurrence: None)
  Receive Date: 20050322
  Receipt Date: 20050315
  Transmission Date: 20050727
  Serious: Yes (Hospitalization)
  Sender: FDA-Public Use
  Company Number: 200510502GDS

PATIENT
  Age: 85 Year
  Sex: Female

DRUGS (6)
  1. ASPIRIN [Suspect]
     Indication: ANGINA UNSTABLE
     Dosage: 100 MG, QD, ORAL
     Route: 048
     Dates: start: 20050217, end: 20050220
  2. AGGRASTAT [Suspect]
     Indication: ANGINA UNSTABLE
     Dosage: 5 ML, Q1HR, INTRAVENOUS
     Route: 042
     Dates: start: 20050218, end: 20050219
  3. AGGRASTAT [Suspect]
     Indication: PREOPERATIVE CARE
     Dosage: 5 ML, Q1HR, INTRAVENOUS
     Route: 042
     Dates: start: 20050218, end: 20050219
  4. HEPARIN [Suspect]
     Indication: ANGINA UNSTABLE
     Dosage: INTRAVENOUS
     Route: 042
     Dates: start: 20050218, end: 20050219
  5. HEPARIN [Suspect]
     Indication: PREOPERATIVE CARE
     Dosage: INTRAVENOUS
     Route: 042
     Dates: start: 20050218, end: 20050219
  6. PLAVIX [Concomitant]

REACTIONS (1)
  - THROMBOCYTOPENIA [None]
